FAERS Safety Report 11019406 (Version 2)
Quarter: 2015Q2

REPORT INFORMATION
  Report Type: Spontaneous
  Country: US (occurrence: US)
  Receive Date: 20150412
  Receipt Date: 20150525
  Transmission Date: 20150821
  Serious: No
  Sender: FDA-Public Use
  Company Number: US-JNJFOC-20141011515

PATIENT
  Age: 26 Year
  Sex: Female
  Weight: 56.7 kg

DRUGS (4)
  1. NEURONTIN [Concomitant]
     Active Substance: GABAPENTIN
     Route: 065
  2. TEGRETOL [Concomitant]
     Active Substance: CARBAMAZEPINE
     Indication: ANGER
     Route: 065
  3. DESYREL (TRAZADONE HCL) [Concomitant]
     Indication: HYPERSOMNIA
     Route: 065
  4. LEVOFLOXACIN. [Suspect]
     Active Substance: LEVOFLOXACIN
     Indication: UPPER RESPIRATORY TRACT INFECTION
     Route: 048
     Dates: start: 201410

REACTIONS (1)
  - Opiates positive [Unknown]

NARRATIVE: CASE EVENT DATE: 20141013
